FAERS Safety Report 23862391 (Version 2)
Quarter: 2024Q2

REPORT INFORMATION
  Report Type: Spontaneous
  Country: DK (occurrence: None)
  Receive Date: 20240516
  Receipt Date: 20240527
  Transmission Date: 20240716
  Serious: Yes (Death, Other)
  Sender: FDA-Public Use
  Company Number: DK-ROCHE-3562179

PATIENT
  Age: 69 Year
  Sex: Male

DRUGS (2)
  1. COLUMVI [Suspect]
     Active Substance: GLOFITAMAB-GXBM
     Indication: Diffuse large B-cell lymphoma
     Route: 065
     Dates: start: 2018, end: 201906
  2. COLUMVI [Suspect]
     Active Substance: GLOFITAMAB-GXBM
     Indication: Follicular lymphoma

REACTIONS (4)
  - Myelodysplastic syndrome [Fatal]
  - Acute myeloid leukaemia [Fatal]
  - Cytokine release syndrome [Unknown]
  - Therapy partial responder [Recovered/Resolved]

NARRATIVE: CASE EVENT DATE: 20210101
